FAERS Safety Report 5155402-5 (Version None)
Quarter: 2006Q4

REPORT INFORMATION
  Report Type: 
  Country: None (occurrence: None)
  Receive Date: 20061121
  Receipt Date: 20061107
  Transmission Date: 20070319
  Serious: Yes (Other)
  Sender: FDA-Public Use
  Company Number: NL-SANOFI-SYNTHELABO-A01200609451

PATIENT
  Sex: Male
  Weight: 80 kg

DRUGS (3)
  1. AVASTIN [Concomitant]
     Indication: COLORECTAL CANCER
     Dosage: UNK
     Route: 042
     Dates: start: 20061025
  2. ELOXATIN [Suspect]
     Indication: COLORECTAL CANCER
     Route: 042
     Dates: start: 20061025, end: 20061025
  3. XELODA [Concomitant]
     Indication: COLORECTAL CANCER
     Route: 048
     Dates: start: 20061025

REACTIONS (1)
  - TRANSIENT ISCHAEMIC ATTACK [None]
